FAERS Safety Report 10621633 (Version 1)
Quarter: 2014Q4

REPORT INFORMATION
  Report Type: Spontaneous
  Country: US (occurrence: None)
  Receive Date: 20141201
  Receipt Date: 20141201
  Transmission Date: 20150529
  Serious: Yes (Other)
  Sender: FDA-Public Use
  Company Number: None

PATIENT
  Age: 52 Year
  Sex: Female
  Weight: 61.69 kg

DRUGS (1)
  1. SINEMET [Suspect]
     Active Substance: CARBIDOPA\LEVODOPA
     Indication: RESTLESS LEGS SYNDROME
     Dosage: TAKEN AT BEDTIME
     Route: 048
     Dates: start: 20141016

REACTIONS (9)
  - Vomiting [None]
  - Incoherent [None]
  - Off label use [None]
  - Seizure [None]
  - Nausea [None]
  - Loss of consciousness [None]
  - Visual acuity reduced [None]
  - Faecal incontinence [None]
  - Urinary incontinence [None]

NARRATIVE: CASE EVENT DATE: 20141015
